FAERS Safety Report 15067176 (Version 1)
Quarter: 2018Q2

REPORT INFORMATION
  Report Type: Spontaneous
  Country: FR (occurrence: FR)
  Receive Date: 20180626
  Receipt Date: 20180626
  Transmission Date: 20180711
  Serious: Yes (Life-Threatening, Hospitalization, Other)
  Sender: FDA-Public Use
  Company Number: FR-OTSUKA-2018_015956

PATIENT
  Age: 28 Year
  Sex: Female

DRUGS (1)
  1. ABILIFY MAINTENA [Suspect]
     Active Substance: ARIPIPRAZOLE
     Indication: SCHIZOPHRENIA
     Dosage: 400 MG, QM
     Route: 030
     Dates: start: 20180311, end: 20180511

REACTIONS (5)
  - Delirium [Unknown]
  - Multiple fractures [Unknown]
  - Suicide attempt [Unknown]
  - Anger [Not Recovered/Not Resolved]
  - Persecutory delusion [Unknown]

NARRATIVE: CASE EVENT DATE: 20180519
